FAERS Safety Report 10081169 (Version 1)
Quarter: 2014Q2

REPORT INFORMATION
  Report Type: Spontaneous
  Country: US (occurrence: None)
  Receive Date: 20140415
  Receipt Date: 20140415
  Transmission Date: 20141212
  Serious: Yes (Other)
  Sender: FDA-Public Use
  Company Number: None

PATIENT
  Age: 16 Year
  Sex: Female
  Weight: 59.42 kg

DRUGS (1)
  1. PRAZOSIN [Suspect]
     Indication: NIGHTMARE
     Route: 048
     Dates: start: 20140321

REACTIONS (1)
  - Rash pruritic [None]
